FAERS Safety Report 20906503 (Version 5)
Quarter: 2022Q4

REPORT INFORMATION
  Report Type: Report from Study
  Country: US (occurrence: US)
  Receive Date: 20220602
  Receipt Date: 20221031
  Transmission Date: 20230113
  Serious: Yes (Hospitalization, Other)
  Sender: FDA-Public Use
  Company Number: US-TAKEDA-2022TUS029920

PATIENT
  Age: 80 Year
  Sex: Female

DRUGS (2)
  1. MOBOCERTINIB [Suspect]
     Active Substance: MOBOCERTINIB
     Indication: Lung neoplasm malignant
     Dosage: 160 MILLIGRAM, QD
     Route: 048
     Dates: start: 20220401
  2. MOBOCERTINIB [Suspect]
     Active Substance: MOBOCERTINIB
     Dosage: 120 MILLIGRAM, QD
     Route: 048

REACTIONS (18)
  - Pelvic fracture [Unknown]
  - Poor quality sleep [Unknown]
  - Epistaxis [Unknown]
  - Hiccups [Unknown]
  - Constipation [Unknown]
  - Blood pressure abnormal [Unknown]
  - Abdominal discomfort [Unknown]
  - Blood pressure increased [Unknown]
  - White blood cell count decreased [Unknown]
  - Red blood cell count decreased [Unknown]
  - Lymphocyte count decreased [Unknown]
  - Dry eye [Unknown]
  - Fatigue [Unknown]
  - Rash [Unknown]
  - Mouth ulceration [Unknown]
  - Rash pruritic [Unknown]
  - Diarrhoea [Unknown]
  - Ejection fraction decreased [Unknown]

NARRATIVE: CASE EVENT DATE: 20221001
